FAERS Safety Report 5885918-5 (Version None)
Quarter: 2008Q3

REPORT INFORMATION
  Report Type: 
  Country: None (occurrence: None)
  Receive Date: 20080917
  Receipt Date: 20080811
  Transmission Date: 20090109
  Serious: No
  Sender: FDA-Public Use
  Company Number: US-BAYER-200832699NA

PATIENT
  Age: 50 Year
  Sex: Male

DRUGS (3)
  1. LEVITRA [Suspect]
     Indication: ERECTILE DYSFUNCTION
     Dosage: TOTAL DAILY DOSE: 20 MG  UNIT DOSE: 20 MG
     Route: 048
     Dates: start: 20060101
  2. LEVITRA [Suspect]
     Dosage: TOTAL DAILY DOSE: 30 MG  UNIT DOSE: 20 MG
     Route: 048
     Dates: start: 20060101
  3. LEVITRA [Suspect]
     Dosage: TOTAL DAILY DOSE: 40 MG  UNIT DOSE: 20 MG
     Route: 048
     Dates: start: 20060101

REACTIONS (1)
  - ERECTILE DYSFUNCTION [None]
